FAERS Safety Report 23017914 (Version 1)
Quarter: 2023Q4

REPORT INFORMATION
  Report Type: Spontaneous
  Country: ZA (occurrence: ZA)
  Receive Date: 20231003
  Receipt Date: 20231003
  Transmission Date: 20240109
  Serious: Yes (Hospitalization, Other)
  Sender: FDA-Public Use
  Company Number: ZA-SANDOZ-SDZ2023ZA034083

PATIENT
  Age: 69 Year
  Sex: Female

DRUGS (1)
  1. ACLASTA [Suspect]
     Active Substance: ZOLEDRONIC ACID
     Indication: Osteoporosis
     Dosage: 5MG/100ML, ANNUALLY, INFUSION
     Route: 065
     Dates: start: 202212

REACTIONS (2)
  - Pathological fracture [Unknown]
  - Hip fracture [Unknown]
